FAERS Safety Report 8600971 (Version 2)
Quarter: 2012Q4

REPORT INFORMATION
  Report Type: 
  Country: US (occurrence: US)
  Receive Date: 20120606
  Receipt Date: 20121226
  Transmission Date: 20130627
  Serious: Yes (Congenital Anomaly, Other)
  Sender: FDA-Public Use
  Company Number: US-PFIZER INC-2012133931

PATIENT
  Sex: Male

DRUGS (4)
  1. ZOLOFT [Suspect]
     Indication: ANXIETY
     Dosage: UNK
     Route: 064
     Dates: start: 1993, end: 1995
  2. ZOLOFT [Suspect]
     Indication: DEPRESSION
  3. ZOLOFT [Suspect]
     Indication: MOOD DISORDER NOS
  4. TYLENOL [Concomitant]
     Dosage: UNK
     Route: 064

REACTIONS (10)
  - Maternal exposure timing unspecified [Unknown]
  - Multiple cardiac defects [Unknown]
  - Pulmonary valve stenosis [Unknown]
  - Respiratory failure [Unknown]
  - Aortic stenosis [Unknown]
  - Aortic valve incompetence [Unknown]
  - Mitral valve incompetence [Unknown]
  - Patent ductus arteriosus [Unknown]
  - Aortic dilatation [Unknown]
  - Atrial septal defect [Unknown]
